FAERS Safety Report 9254532 (Version 1)
Quarter: 2013Q1

REPORT INFORMATION
  Report Type: Spontaneous
  Country: US (occurrence: None)
  Receive Date: 20121203
  Receipt Date: 20121203
  Transmission Date: 20140127
  Serious: Yes (Hospitalization)
  Sender: FDA-Public Use
  Company Number: 2012SP011830

PATIENT
  Age: 31 Year
  Sex: Female
  Weight: 79.8 kg

DRUGS (3)
  1. NUVARING [Suspect]
     Indication: CONTRACEPTION
     Dates: start: 20090129
  2. COUMADIN (WARFARIN SODIUM) [Suspect]
     Route: 067
     Dates: start: 20090129
  3. NEXIUM (ESOMEPRAZOLE MAGNESIUM) [Concomitant]

REACTIONS (7)
  - Vena cava thrombosis [None]
  - Cholelithiasis [None]
  - Diverticulum [None]
  - Cerebral thrombosis [None]
  - Drug hypersensitivity [None]
  - Renal disorder [None]
  - Deep vein thrombosis [None]
